FAERS Safety Report 8471238-1 (Version None)
Quarter: 2012Q2

REPORT INFORMATION
  Report Type: 
  Country: None (occurrence: None)
  Receive Date: 20120627
  Receipt Date: 20120614
  Transmission Date: 20120825
  Serious: Yes (Other)
  Sender: FDA-Public Use
  Company Number: FR-CELGENEUS-056-21880-12062225

PATIENT
  Sex: Female
  Weight: 110 kg

DRUGS (7)
  1. CYCLOPHOSPHAMIDE [Concomitant]
     Indication: LYMPHOMA
     Route: 065
     Dates: start: 20091218, end: 20100518
  2. REVLIMID [Suspect]
     Route: 048
     Dates: end: 20110227
  3. REVLIMID [Suspect]
     Indication: DIFFUSE LARGE B-CELL LYMPHOMA
     Dosage: 5 MILLIGRAM
     Route: 048
     Dates: start: 20100624
  4. RITUXIMAB [Concomitant]
     Indication: LYMPHOMA
     Route: 065
     Dates: start: 20091218, end: 20100518
  5. DOXORUBICIN HCL [Concomitant]
     Indication: LYMPHOMA
     Route: 065
     Dates: start: 20091218, end: 20100518
  6. VINCRISTINE [Concomitant]
     Indication: LYMPHOMA
     Route: 065
     Dates: start: 20091218, end: 20100518
  7. PREDNISOLONE [Concomitant]
     Indication: LYMPHOMA
     Route: 065
     Dates: start: 20091218, end: 20100518

REACTIONS (1)
  - MYELODYSPLASTIC SYNDROME [None]
